FAERS Safety Report 5144784-6 (Version None)
Quarter: 2006Q4

REPORT INFORMATION
  Report Type: 
  Country: None (occurrence: None)
  Receive Date: 20061103
  Receipt Date: 20061103
  Transmission Date: 20070319
  Serious: Yes (Disabling)
  Sender: FDA-Public Use
  Company Number: None

PATIENT

DRUGS (2)
  1. MIRAPEX [Suspect]
     Indication: PARKINSONISM
     Dosage: 1 TABLET 3 TIMES DAILY PO
     Route: 048
  2. MIRALAX [Suspect]
     Indication: CONSTIPATION
     Dosage: 17 GRAM ONCE DAILY PO
     Route: 048

REACTIONS (3)
  - DRUG DISPENSING ERROR [None]
  - DRUG PRESCRIBING ERROR [None]
  - MEDICATION ERROR [None]
